FAERS Safety Report 6155647-1 (Version None)
Quarter: 2009Q2

REPORT INFORMATION
  Report Type: 
  Country: None (occurrence: None)
  Receive Date: 20090415
  Receipt Date: 20090407
  Transmission Date: 20091009
  Serious: Yes (Hospitalization)
  Sender: FDA-Public Use
  Company Number: JP-BRISTOL-MYERS SQUIBB COMPANY-14586374

PATIENT
  Age: 46 Year
  Sex: Female
  Weight: 50 kg

DRUGS (16)
  1. ERBITUX [Suspect]
     Indication: COLON CANCER
     Dosage: 250MG/ML:06NOV08-15JAN09, 400MG/ML:23OCT08-23OCT08
     Route: 042
     Dates: start: 20081023, end: 20090115
  2. IRINOTECAN HCL [Concomitant]
     Indication: COLON CANCER
     Dosage: 23OCT08-23OCT08:150MG/M2(1 IN 3WEEKS), 13NOV08-13NOV08:125MG/M2,  250MG/M2 1 IN 5WK 4DEC08-15JAN09.
     Route: 042
     Dates: start: 20081023, end: 20090108
  3. CHLOR-TRIMETON [Concomitant]
     Indication: PREMEDICATION
     Route: 042
     Dates: start: 20081023, end: 20090115
  4. DECADRON [Concomitant]
     Indication: PREMEDICATION
     Route: 042
     Dates: start: 20081023, end: 20090115
  5. ZANTAC [Concomitant]
     Indication: PREMEDICATION
     Route: 042
     Dates: start: 20081023, end: 20090115
  6. NEU-UP [Concomitant]
     Indication: PREMEDICATION
     Route: 058
     Dates: start: 20081030
  7. SEROTONE [Concomitant]
     Indication: ANTIEMETIC SUPPORTIVE CARE
     Route: 042
     Dates: start: 20081023
  8. PRIMPERAN [Concomitant]
     Indication: ANTIEMETIC SUPPORTIVE CARE
     Route: 042
     Dates: start: 20081023
  9. OXYCONTIN [Concomitant]
     Dosage: FORM -TABS
     Route: 048
     Dates: start: 20080828
  10. NOVAMIN [Concomitant]
     Dosage: FORM -TABS
     Route: 048
     Dates: start: 20080911
  11. ALDACTONE [Concomitant]
     Dosage: FORM -TABS
     Route: 048
     Dates: start: 20080219
  12. FERROMIA [Concomitant]
     Dosage: FORM -TABS
     Route: 048
     Dates: start: 20080325
  13. CINAL S [Concomitant]
     Dosage: FORM -TABS
     Route: 048
     Dates: start: 20080325
  14. MUCOSTA [Concomitant]
     Dosage: FORM -TABS
     Route: 048
     Dates: start: 20080714
  15. MAGMITT [Concomitant]
     Dosage: FORM -TABS
     Route: 048
     Dates: start: 20080219
  16. HYPEN [Concomitant]
     Dosage: FORM -TABS
     Route: 048
     Dates: start: 20080714

REACTIONS (4)
  - CONDITION AGGRAVATED [None]
  - HEPATIC FAILURE [None]
  - MALIGNANT NEOPLASM PROGRESSION [None]
  - METASTASES TO LIVER [None]
